FAERS Safety Report 5411657-0 (Version None)
Quarter: 2007Q3

REPORT INFORMATION
  Report Type: 
  Country: None (occurrence: None)
  Receive Date: 20070810
  Receipt Date: 20070730
  Transmission Date: 20080115
  Serious: Yes (Other)
  Sender: FDA-Public Use
  Company Number: CA-PFIZER INC-2007064439

PATIENT
  Age: 51 Year
  Sex: Female

DRUGS (6)
  1. CHAMPIX [Suspect]
     Route: 048
  2. BIAXIN XL [Concomitant]
  3. RABEPRAZOLE SODIUM [Concomitant]
     Dates: start: 20070715, end: 20070701
  4. NAPROXEN [Concomitant]
     Dates: start: 20070715, end: 20070701
  5. LAMISIL [Concomitant]
  6. ELAVIL [Concomitant]

REACTIONS (1)
  - PHLEBITIS [None]
